FAERS Safety Report 9785182 (Version 1)
Quarter: 2013Q4

REPORT INFORMATION
  Report Type: Report from Study
  Country: US (occurrence: US)
  Receive Date: 20131227
  Receipt Date: 20131227
  Transmission Date: 20140711
  Serious: Yes (Hospitalization)
  Sender: FDA-Public Use
  Company Number: US-ROCHE-1322980

PATIENT
  Age: 51 Year
  Sex: 0

DRUGS (2)
  1. BEVACIZUMAB [Suspect]
     Indication: RENAL CELL CARCINOMA
     Dosage: DATE OF MOST RECENT DOSE PRIOR TO SAE: 11/JUL/2013.
     Route: 042
     Dates: start: 20130620
  2. TRC105 [Suspect]
     Indication: RENAL CELL CARCINOMA
     Dosage: IN CYCLE 1: 3MG/KG INTRAVENOUS (IV) OVER 4 HOURS ON DAY 8 AND 7MG/KG IV OVER 4 HOURS ON DAY 11 AND 1
     Route: 042
     Dates: start: 20130620

REACTIONS (1)
  - Bile duct stenosis [Recovered/Resolved]
